FAERS Safety Report 8029733-5 (Version None)
Quarter: 2012Q1

REPORT INFORMATION
  Report Type: 
  Country: None (occurrence: None)
  Receive Date: 20120109
  Receipt Date: 20120104
  Transmission Date: 20120608
  Serious: Yes (Life-Threatening, Hospitalization, Other)
  Sender: FDA-Public Use
  Company Number: BR-BAYER-2012-001164

PATIENT
  Age: 27 Year
  Sex: Female
  Weight: 76 kg

DRUGS (2)
  1. NEUTROFER [Concomitant]
     Indication: ANAEMIA
     Dosage: 1 DF, QD
     Route: 048
     Dates: start: 20111102
  2. MIRENA [Suspect]
     Indication: CONTRACEPTION
     Dosage: 20 ?G, CONT
     Route: 015
     Dates: start: 20100101

REACTIONS (11)
  - UTERINE HAEMORRHAGE [None]
  - MALAISE [None]
  - ECTOPIC PREGNANCY WITH INTRAUTERINE DEVICE [None]
  - DEPRESSION [None]
  - ABDOMINAL DISTENSION [None]
  - RUPTURED ECTOPIC PREGNANCY [None]
  - SYNCOPE [None]
  - PROCEDURAL PAIN [None]
  - AMENORRHOEA [None]
  - URINARY INCONTINENCE [None]
  - ABDOMINAL PAIN [None]
